FAERS Safety Report 9648740 (Version 2)
Quarter: 2013Q4

REPORT INFORMATION
  Report Type: Spontaneous
  Country: US (occurrence: US)
  Receive Date: 20131028
  Receipt Date: 20131113
  Transmission Date: 20140711
  Serious: Yes (Hospitalization)
  Sender: FDA-Public Use
  Company Number: US-ACTELION-A-NJ2013-90076

PATIENT
  Age: 47 Year
  Sex: Male

DRUGS (1)
  1. VELETRI [Suspect]
     Indication: COR PULMONALE CHRONIC
     Dosage: 20 UNK, UNK
     Route: 042
     Dates: start: 20130427

REACTIONS (2)
  - Umbilical hernia, obstructive [Unknown]
  - Abdominal pain [Unknown]
